FAERS Safety Report 4519404-1 (Version None)
Quarter: 2004Q4

REPORT INFORMATION
  Report Type: 
  Country: None (occurrence: None)
  Receive Date: 20041202
  Receipt Date: 20041123
  Transmission Date: 20050328
  Serious: No
  Sender: FDA-Public Use
  Company Number: SE-2004-035602

PATIENT
  Age: 32 Year
  Sex: Female

DRUGS (1)
  1. LEVONORGESTREL [Suspect]
     Dosage: 20 UG/DAY, CONT, INTRA-UTERINE
     Route: 015
     Dates: start: 19940101, end: 19990101

REACTIONS (13)
  - BLINDNESS TRANSIENT [None]
  - BLINDNESS UNILATERAL [None]
  - CARPAL TUNNEL SYNDROME [None]
  - COMPLICATION OF PREGNANCY [None]
  - DEPRESSION [None]
  - DRUG EXPOSURE DURING PREGNANCY [None]
  - GASTRIC NEOPLASM [None]
  - HYPOAESTHESIA [None]
  - MIGRAINE [None]
  - PAIN [None]
  - PREGNANCY [None]
  - VISUAL DISTURBANCE [None]
  - WEIGHT INCREASED [None]
